FAERS Safety Report 25778379 (Version 1)
Quarter: 2025Q3

REPORT INFORMATION
  Report Type: Spontaneous
  Country: US (occurrence: US)
  Receive Date: 20250909
  Receipt Date: 20250909
  Transmission Date: 20251020
  Serious: Yes (Hospitalization, Disabling)
  Sender: ROCHE
  Company Number: US-ROCHE-10000380192

PATIENT
  Age: 62 Year
  Sex: Female

DRUGS (1)
  1. ACTEMRA [Suspect]
     Active Substance: TOCILIZUMAB
     Indication: Rheumatoid arthritis
     Route: 042

REACTIONS (3)
  - Localised infection [Recovering/Resolving]
  - Gait inability [Unknown]
  - Inflammation [Unknown]

NARRATIVE: CASE EVENT DATE: 20250301
